FAERS Safety Report 7052145-8 (Version None)
Quarter: 2010Q4

REPORT INFORMATION
  Report Type: 
  Country: None (occurrence: None)
  Receive Date: 20101019
  Receipt Date: 20101012
  Transmission Date: 20110411
  Serious: Yes (Hospitalization)
  Sender: FDA-Public Use
  Company Number: PHHO2010US13388

PATIENT
  Sex: Male
  Weight: 85.714 kg

DRUGS (13)
  1. AFINITOR [Suspect]
     Indication: METASTATIC MALIGNANT MELANOMA
     Dosage: 5 MG, QD
     Route: 048
     Dates: start: 20100602, end: 20100808
  2. AFINITOR [Suspect]
     Dosage: 5 MG, QOD
     Route: 048
     Dates: start: 20100809
  3. PACLITAXEL COMP-PAC+ [Suspect]
     Indication: METASTATIC MALIGNANT MELANOMA
     Dosage: 350MG
     Dates: start: 20100602, end: 20100803
  4. PACLITAXEL COMP-PAC+ [Suspect]
     Dosage: 300MG
     Route: 048
     Dates: start: 20100804
  5. CARBOPLATIN [Suspect]
     Indication: METASTATIC MALIGNANT MELANOMA
     Dosage: 440MG (AUC=6)
     Route: 048
     Dates: start: 20100602, end: 20100803
  6. CARBOPLATIN [Suspect]
     Dosage: 418MG (AUC=5)
     Route: 048
     Dates: start: 20100804
  7. VERAPAMIL [Concomitant]
  8. LASIX [Concomitant]
  9. ESOMEPRAZOLE [Concomitant]
  10. COLCHICINE [Concomitant]
  11. POTASSIUM CHLORIDE [Concomitant]
  12. ALLOPURINOL [Concomitant]
  13. ALBUMIN (HUMAN) [Concomitant]

REACTIONS (8)
  - ANAEMIA [None]
  - ARTERIOVENOUS MALFORMATION [None]
  - GASTRIC HAEMORRHAGE [None]
  - HAEMATEMESIS [None]
  - HIATUS HERNIA [None]
  - NAUSEA [None]
  - SMALL INTESTINAL OBSTRUCTION [None]
  - THROMBOCYTOPENIA [None]
